FAERS Safety Report 14933529 (Version 1)
Quarter: 2018Q2

REPORT INFORMATION
  Report Type: Spontaneous
  Country: US (occurrence: US)
  Receive Date: 20180524
  Receipt Date: 20180524
  Transmission Date: 20180711
  Serious: No
  Sender: FDA-Public Use
  Company Number: US-JNJFOC-20180505046

PATIENT
  Sex: Female

DRUGS (5)
  1. PLAVIX [Concomitant]
     Active Substance: CLOPIDOGREL BISULFATE
     Indication: PRODUCT USED FOR UNKNOWN INDICATION
     Route: 065
  2. TYLENOL [Suspect]
     Active Substance: ACETAMINOPHEN
     Indication: PAIN
     Route: 065
  3. TYLENOL ARTHRITIS PAIN [Suspect]
     Active Substance: ACETAMINOPHEN
     Indication: PAIN
     Route: 065
  4. TYLENOL [Suspect]
     Active Substance: ACETAMINOPHEN
     Route: 065
  5. TYLENOL ARTHRITIS PAIN [Suspect]
     Active Substance: ACETAMINOPHEN
     Route: 065

REACTIONS (1)
  - Drug ineffective [Unknown]
